FAERS Safety Report 6583627-0 (Version None)
Quarter: 2010Q1

REPORT INFORMATION
  Report Type: 
  Country: None (occurrence: None)
  Receive Date: 20100216
  Receipt Date: 20100209
  Transmission Date: 20100710
  Serious: Yes (Other)
  Sender: FDA-Public Use
  Company Number: CA-AMGEN-QUU391607

PATIENT
  Age: 65 Year
  Sex: Male

DRUGS (3)
  1. VECTIBIX [Suspect]
     Indication: COLORECTAL CANCER
     Dates: start: 20091001
  2. AVAPRO [Concomitant]
     Route: 048
  3. MAGNESIUM [Concomitant]

REACTIONS (1)
  - BLOOD PRESSURE INCREASED [None]
